FAERS Safety Report 19677538 (Version 1)
Quarter: 2021Q3

REPORT INFORMATION
  Report Type: Spontaneous
  Country: IN (occurrence: IN)
  Receive Date: 20210810
  Receipt Date: 20210810
  Transmission Date: 20211014
  Serious: Yes (Other)
  Sender: FDA-Public Use
  Company Number: IN-DRREDDYS-LIT/IND/21/0138745

PATIENT
  Age: 22 Year
  Sex: Male

DRUGS (4)
  1. FLUCONAZOLE. [Suspect]
     Active Substance: FLUCONAZOLE
     Indication: PHAEOHYPHOMYCOSIS
  2. AMPHOTERICIN B. [Suspect]
     Active Substance: AMPHOTERICIN B
     Indication: PHAEOHYPHOMYCOSIS
  3. FLUCYTOSINE. [Suspect]
     Active Substance: FLUCYTOSINE
     Indication: PHAEOHYPHOMYCOSIS
  4. TERBINAFINE. [Suspect]
     Active Substance: TERBINAFINE
     Indication: PHAEOHYPHOMYCOSIS

REACTIONS (1)
  - Drug ineffective [Unknown]
